FAERS Safety Report 8155187-4 (Version None)
Quarter: 2012Q1

REPORT INFORMATION
  Report Type: 
  Country: None (occurrence: None)
  Receive Date: 20120221
  Receipt Date: 20120213
  Transmission Date: 20120608
  Serious: Yes (Other)
  Sender: FDA-Public Use
  Company Number: US-ASTRAZENECA-2012SE06465

PATIENT
  Age: 75 Year
  Sex: Female

DRUGS (5)
  1. NEXIUM [Concomitant]
  2. ZANTAC [Concomitant]
  3. PREVACID [Concomitant]
  4. ARIMIDEX [Suspect]
     Route: 048
  5. MIRALAX [Concomitant]

REACTIONS (2)
  - NEOPLASM MALIGNANT [None]
  - ADVERSE DRUG REACTION [None]
